FAERS Safety Report 5782009-9 (Version None)
Quarter: 2008Q2

REPORT INFORMATION
  Report Type: 
  Country: None (occurrence: None)
  Receive Date: 20080623
  Receipt Date: 20080619
  Transmission Date: 20081010
  Serious: Yes (Death, Hospitalization)
  Sender: FDA-Public Use
  Company Number: NL-ASTRAZENECA-2008AC01568

PATIENT
  Age: 29018 Day
  Sex: Female

DRUGS (6)
  1. ARIMIDEX [Suspect]
     Indication: BREAST CANCER
     Route: 048
     Dates: start: 20061030
  2. CALCICHEW [Concomitant]
     Dates: start: 20061030
  3. FUROSEMIDE [Concomitant]
  4. SPIRONOLACTONE [Concomitant]
  5. URSOCHOL [Concomitant]
     Dosage: 300 BID - TOTAL DAILY DOSE 600
  6. NOVOLOG MIX 70/30 [Concomitant]
     Dosage: 100 BID - TOTAL DAILY DOSE 200 IE/ML

REACTIONS (2)
  - ERYSIPELAS [None]
  - RESPIRATORY FAILURE [None]
